FAERS Safety Report 6784972-6 (Version None)
Quarter: 2010Q2

REPORT INFORMATION
  Report Type: 
  Country: None (occurrence: None)
  Receive Date: 20100618
  Receipt Date: 20090129
  Transmission Date: 20101027
  Serious: Yes (Hospitalization)
  Sender: FDA-Public Use
  Company Number: LEO-2010-00533

PATIENT
  Age: 22 Year
  Sex: Female

DRUGS (2)
  1. INNOHEP [Suspect]
     Indication: THROMBOSIS PROPHYLAXIS
     Dosage: 4500 IU (4500 IU, 1 IN 1 D)
     Dates: start: 20030811, end: 20030920
  2. MARCUMAR [Concomitant]

REACTIONS (2)
  - ABORTION MISSED [None]
  - DRUG EXPOSURE DURING PREGNANCY [None]
